FAERS Safety Report 6203368-9 (Version None)
Quarter: 2009Q2

REPORT INFORMATION
  Report Type: 
  Country: None (occurrence: None)
  Receive Date: 20090527
  Receipt Date: 20090515
  Transmission Date: 20091009
  Serious: Yes (Other)
  Sender: FDA-Public Use
  Company Number: GR-AMGEN-US347601

PATIENT
  Sex: Female

DRUGS (2)
  1. ENBREL [Suspect]
     Indication: JUVENILE ARTHRITIS
     Dosage: 0.4 MG//KG BODY WEIGHT TWICE WEEKLY
     Route: 058
     Dates: start: 20081020, end: 20081217
  2. METHOTREXATE [Suspect]
     Indication: JUVENILE ARTHRITIS
     Dosage: 7.5 MG ONCE WEEKLY
     Route: 048
     Dates: start: 20070625, end: 20081217

REACTIONS (3)
  - BARRETT'S OESOPHAGUS [None]
  - GASTRIC HAEMORRHAGE [None]
  - OESOPHAGITIS [None]
